FAERS Safety Report 11303983 (Version 1)
Quarter: 2015Q3

REPORT INFORMATION
  Report Type: Spontaneous
  Country: US (occurrence: US)
  Receive Date: 20150723
  Receipt Date: 20150723
  Transmission Date: 20151125
  Serious: No
  Sender: FDA-Public Use
  Company Number: US-JNJFOC-20150604080

PATIENT
  Age: 19 Year
  Sex: Male
  Weight: 74.84 kg

DRUGS (3)
  1. OTHER RESPIRATORY SYSTEM PRODUCTS [Concomitant]
     Active Substance: UNSPECIFIED INGREDIENT
     Route: 055
  2. ZYRTEC [Suspect]
     Active Substance: CETIRIZINE HYDROCHLORIDE
     Route: 048
  3. ZYRTEC [Suspect]
     Active Substance: CETIRIZINE HYDROCHLORIDE
     Indication: SEASONAL ALLERGY
     Route: 048
     Dates: start: 20150531

REACTIONS (1)
  - Drug ineffective [Unknown]
